FAERS Safety Report 9937387 (Version 1)
Quarter: 2014Q1

REPORT INFORMATION
  Report Type: Report from Study
  Country: US (occurrence: US)
  Receive Date: 20140303
  Receipt Date: 20140303
  Transmission Date: 20141002
  Serious: Yes (Other)
  Sender: FDA-Public Use
  Company Number: US-ROCHE-1334333

PATIENT
  Age: 48 Year
  Sex: Female

DRUGS (18)
  1. LUCENTIS [Suspect]
     Indication: DIABETIC RETINOPATHY
     Route: 050
  2. LUCENTIS [Suspect]
     Indication: DIABETIC RETINAL OEDEMA
  3. LUCENTIS [Suspect]
     Indication: DIABETIC EYE DISEASE
  4. AVASTIN [Suspect]
     Indication: PRODUCT USED FOR UNKNOWN INDICATION
     Route: 065
  5. NEO-SYNEPHRINE [Concomitant]
     Route: 065
  6. MYDRIACYL [Concomitant]
     Route: 065
  7. BETADINE [Concomitant]
     Route: 065
  8. BESIVANCE [Concomitant]
     Dosage: 1 DROP LEFT EYE
     Route: 065
  9. TERBINAFINE [Concomitant]
     Dosage: QD
     Route: 065
  10. LORTAB [Concomitant]
  11. ASPIRIN [Concomitant]
     Dosage: QD
     Route: 065
  12. BENAZEPRIL [Concomitant]
     Dosage: QD
     Route: 065
  13. FUROSEMIDE [Concomitant]
     Dosage: QD
     Route: 065
  14. GLIPIZIDE ER [Concomitant]
     Dosage: QD
     Route: 065
  15. KLOR-CON 10 [Concomitant]
     Dosage: QD
     Route: 065
  16. METFORMIN [Concomitant]
     Dosage: BID
     Route: 065
  17. PRAVASTATIN [Concomitant]
     Dosage: QD
     Route: 065
  18. ALEVE [Concomitant]

REACTIONS (12)
  - Macular oedema [Unknown]
  - Cystoid macular oedema [Unknown]
  - Visual acuity reduced [Unknown]
  - Cataract nuclear [Unknown]
  - Macular fibrosis [Unknown]
  - Retinal aneurysm [Unknown]
  - Vitreous floaters [Unknown]
  - Vitreous haemorrhage [Unknown]
  - Retinal vascular disorder [Unknown]
  - Vision blurred [Unknown]
  - Retinal haemorrhage [Unknown]
  - Retinal scar [Unknown]
